FAERS Safety Report 8695737 (Version 2)
Quarter: 2013Q1

REPORT INFORMATION
  Report Type: Spontaneous
  Country: US (occurrence: US)
  Receive Date: 20120731
  Receipt Date: 20130313
  Transmission Date: 20140127
  Serious: Yes (Hospitalization, Other)
  Sender: FDA-Public Use
  Company Number: US-RB-039910-12

PATIENT
  Age: 23 Year
  Sex: Female

DRUGS (4)
  1. SUBOXONE TABLET [Suspect]
     Indication: DRUG DEPENDENCE
     Route: 065
     Dates: start: 201201
  2. GENERIC BUPRENORPHINE [Suspect]
     Indication: DRUG DEPENDENCE
     Route: 060
     Dates: start: 201107, end: 201201
  3. CELEXA [Concomitant]
     Indication: DEPRESSION
     Dosage: DOSING DETAILS UNKNOWN
     Route: 065
  4. PRENATAL VITAMINS [Concomitant]
     Indication: PRODUCT USED FOR UNKNOWN INDICATION
     Dosage: DOSING DETAILS UNKNOWN
     Route: 065
     Dates: start: 2011, end: 201201

REACTIONS (4)
  - Exposure during pregnancy [Recovered/Resolved]
  - Gestational hypertension [Recovered/Resolved]
  - Pre-eclampsia [Recovered/Resolved]
  - Postpartum haemorrhage [Recovered/Resolved]
